FAERS Safety Report 23672135 (Version 1)
Quarter: 2024Q1

REPORT INFORMATION
  Report Type: Spontaneous
  Country: FR (occurrence: FR)
  Receive Date: 20240326
  Receipt Date: 20240326
  Transmission Date: 20240409
  Serious: Yes (Other)
  Sender: FDA-Public Use
  Company Number: FR-AFSSAPS-MP2024000395

PATIENT

DRUGS (8)
  1. ESOMEPRAZOLE [Suspect]
     Active Substance: ESOMEPRAZOLE
     Indication: Hyperchlorhydria
     Dosage: 20 MILLIGRAM, ONCE A DAY
     Route: 048
     Dates: start: 202307
  2. FYCOMPA [Suspect]
     Active Substance: PERAMPANEL
     Indication: Epileptic encephalopathy
     Dosage: 8 MILLIGRAM, ONCE A DAY
     Route: 048
     Dates: start: 202112
  3. MELATONIN [Suspect]
     Active Substance: MELATONIN
     Indication: Epileptic encephalopathy
     Dosage: 10 MILLIGRAM, ONCE A DAY
     Route: 048
     Dates: start: 202205
  4. RIVOTRIL [Suspect]
     Active Substance: CLONAZEPAM
     Indication: Epileptic encephalopathy
     Dosage: 1 MILLIGRAM, ONCE A DAY
     Route: 048
     Dates: start: 202310
  5. CENOBAMATE [Suspect]
     Active Substance: CENOBAMATE
     Indication: Epileptic encephalopathy
     Dosage: ONCE A DAY
     Route: 048
     Dates: start: 202310
  6. VALPROATE SODIUM [Suspect]
     Active Substance: VALPROATE SODIUM
     Indication: Epileptic encephalopathy
     Dosage: 500 MILLIGRAM, TWICE A DAY
     Route: 048
     Dates: end: 202309
  7. VALPROATE SODIUM [Suspect]
     Active Substance: VALPROATE SODIUM
     Dosage: 750 MILLIGRAM, TWICE A DAY
     Route: 048
     Dates: start: 202310
  8. SOLU-MEDROL [Concomitant]
     Active Substance: METHYLPREDNISOLONE SODIUM SUCCINATE
     Indication: Epileptic encephalopathy
     Dosage: ONCE A MONTH
     Route: 042

REACTIONS (1)
  - Neutropenia [Unknown]

NARRATIVE: CASE EVENT DATE: 20240223
